FAERS Safety Report 7040267-7 (Version None)
Quarter: 2010Q4

REPORT INFORMATION
  Report Type: 
  Country: None (occurrence: None)
  Receive Date: 20101012
  Receipt Date: 20101004
  Transmission Date: 20110411
  Serious: Yes (Other)
  Sender: FDA-Public Use
  Company Number: US-JNJCH-2010022749

PATIENT
  Age: 48 Year
  Sex: Male
  Weight: 81.6 kg

DRUGS (1)
  1. LISTERINE TOTAL CARE PLUS WHITENING [Suspect]
     Indication: DENTAL DISORDER PROPHYLAXIS
     Dosage: TEXT:15ML 2X PER DAY
     Route: 048
     Dates: start: 20100927, end: 20101004

REACTIONS (2)
  - APPLICATION SITE BURN [None]
  - OROPHARYNGEAL BLISTERING [None]
